FAERS Safety Report 9710881 (Version 1)
Quarter: 2013Q4

REPORT INFORMATION
  Report Type: Spontaneous
  Country: US (occurrence: None)
  Receive Date: 20131125
  Receipt Date: 20131125
  Transmission Date: 20140711
  Serious: Yes (Disabling)
  Sender: FDA-Public Use
  Company Number: None

PATIENT
  Age: 54 Year
  Sex: Female
  Weight: 58.97 kg

DRUGS (1)
  1. SAVELLA [Suspect]
     Indication: FIBROMYALGIA

REACTIONS (4)
  - Amnesia [None]
  - Hypothyroidism [None]
  - Genital hypoaesthesia [None]
  - Accommodation disorder [None]
